FAERS Safety Report 25467562 (Version 1)
Quarter: 2025Q2

REPORT INFORMATION
  Report Type: Spontaneous
  Country: FR (occurrence: FR)
  Receive Date: 20250623
  Receipt Date: 20250623
  Transmission Date: 20250716
  Serious: Yes (Other)
  Sender: AUROBINDO
  Company Number: FR-AFSSAPS-AVBX2025000370

PATIENT
  Age: 40 Year
  Sex: Male

DRUGS (2)
  1. ZOPICLONE [Suspect]
     Active Substance: ZOPICLONE
     Indication: Sleep disorder therapy
     Route: 048
     Dates: start: 202504
  2. DIAZEPAM [Suspect]
     Active Substance: DIAZEPAM
     Indication: Drug use disorder
     Route: 048
     Dates: start: 202504

REACTIONS (1)
  - Drug use disorder [Recovered/Resolved]

NARRATIVE: CASE EVENT DATE: 20250409
